FAERS Safety Report 7969584-0 (Version None)
Quarter: 2011Q4

REPORT INFORMATION
  Report Type: 
  Country: None (occurrence: None)
  Receive Date: 20111212
  Receipt Date: 20111206
  Transmission Date: 20120403
  Serious: Yes (Hospitalization, Other)
  Sender: FDA-Public Use
  Company Number: DE-PFIZER INC-2011297389

PATIENT
  Age: 4 Week
  Sex: Female

DRUGS (2)
  1. ZOLOFT [Suspect]
     Indication: DEPRESSION
     Dosage: 150 MG, 1X/DAY
     Route: 064
  2. ZOLOFT [Suspect]
     Dosage: 100 MG, 1X/DAY
     Route: 063

REACTIONS (4)
  - EXPOSURE DURING BREAST FEEDING [None]
  - HYPOTONIA [None]
  - SOMNOLENCE NEONATAL [None]
  - LOSS OF CONSCIOUSNESS [None]
